FAERS Safety Report 4804769-3 (Version None)
Quarter: 2005Q4

REPORT INFORMATION
  Report Type: 
  Country: None (occurrence: None)
  Receive Date: 20051017
  Receipt Date: 20050822
  Transmission Date: 20060501
  Serious: Yes (Death)
  Sender: FDA-Public Use
  Company Number: 805#1#2005-00055

PATIENT
  Age: 65 Year
  Sex: Male

DRUGS (9)
  1. ALPROSTADIL [Suspect]
     Indication: ARTERIOSCLEROSIS OBLITERANS
     Dosage: 80 MCG (40 MCG 2 IN 1 DAY (S) ) INTRAVENOUS DRIP
     Route: 041
     Dates: start: 20050729, end: 20050802
  2. AMLOLDIPINE BESILATE (AMLODIPINE BESILATE) [Concomitant]
  3. ATORVASTATIN-CALCIUM-HYDRATE (ATORVASTATIN) [Concomitant]
  4. CANDESARTAN-CILEXETIL (CANDESARTAN CILEXETIL) [Concomitant]
  5. CEFAZOLIN-SODIUM-HYDRATE [Concomitant]
  6. HUMAN SERUM ALBUMIN (ALBUMIN NORMAL HUMAN SERUM) [Concomitant]
  7. CEFDINIR [Concomitant]
  8. LOXOPROFEN SODIUM (LOXOPROFEN SODIUM) [Concomitant]
  9. REBAMIPIDE (REBAMIPIDE) [Concomitant]

REACTIONS (8)
  - BLOOD PRESSURE DECREASED [None]
  - CARDIAC FAILURE [None]
  - DRUG INEFFECTIVE [None]
  - OXYGEN SATURATION DECREASED [None]
  - PULMONARY CONGESTION [None]
  - PULMONARY OEDEMA [None]
  - UPPER GASTROINTESTINAL HAEMORRHAGE [None]
  - WOUND INFECTION [None]
